FAERS Safety Report 6297249-2 (Version None)
Quarter: 2009Q3

REPORT INFORMATION
  Report Type: 
  Country: None (occurrence: None)
  Receive Date: 20090804
  Receipt Date: 20090804
  Transmission Date: 20100115
  Serious: No
  Sender: FDA-Public Use
  Company Number: None

PATIENT
  Sex: Female
  Weight: 67.1324 kg

DRUGS (1)
  1. METOPROLOL SUCCINATE [Suspect]
     Indication: MITRAL VALVE REPAIR
     Dosage: 50 MGS. 1X PER DAY
     Dates: start: 20090101

REACTIONS (5)
  - ALOPECIA [None]
  - HALLUCINATION [None]
  - INSOMNIA [None]
  - THERAPEUTIC RESPONSE DECREASED [None]
  - VISUAL IMPAIRMENT [None]
